FAERS Safety Report 10072884 (Version 1)
Quarter: 2014Q2

REPORT INFORMATION
  Report Type: Spontaneous
  Country: US (occurrence: US)
  Receive Date: 20140411
  Receipt Date: 20140411
  Transmission Date: 20141212
  Serious: Yes (Other)
  Sender: FDA-Public Use
  Company Number: US-BRISTOL-MYERS SQUIBB COMPANY-20626735

PATIENT
  Sex: 0

DRUGS (2)
  1. BYETTA [Suspect]
     Dates: start: 20090325, end: 201203
  2. JANUVIA [Suspect]
     Dates: start: 20080611, end: 200904

REACTIONS (1)
  - Pancreatic carcinoma [Unknown]
